FAERS Safety Report 10583657 (Version 3)
Quarter: 2015Q2

REPORT INFORMATION
  Report Type: Spontaneous
  Country: JP (occurrence: JP)
  Receive Date: 20141114
  Receipt Date: 20150410
  Transmission Date: 20150821
  Serious: Yes (Hospitalization)
  Sender: FDA-Public Use
  Company Number: JP-AMGEN-JPNSP2014088302

PATIENT
  Age: 65 Year
  Sex: Female
  Weight: 47 kg

DRUGS (10)
  1. REGPARA [Suspect]
     Active Substance: CINACALCET HYDROCHLORIDE
     Indication: HYPERPARATHYROIDISM SECONDARY
     Dosage: 25 MG, UNK
     Route: 048
     Dates: start: 20141016, end: 20141103
  2. ROCALTROL [Concomitant]
     Active Substance: CALCITRIOL
     Indication: HYPERPARATHYROIDISM SECONDARY
     Dosage: 0.5 MUG, 3 TIMES/WK
     Route: 042
  3. HERCEPTIN [Concomitant]
     Active Substance: TRASTUZUMAB
     Indication: BREAST CANCER
     Dosage: UNK
     Route: 042
     Dates: start: 2009, end: 20140422
  4. FOSRENOL [Concomitant]
     Active Substance: LANTHANUM CARBONATE
     Indication: HYPERPHOSPHATAEMIA
     Dosage: 250 MG, TID
     Route: 048
  5. CALTAN [Concomitant]
     Active Substance: CALCIUM CARBONATE
     Indication: HYPERPHOSPHATAEMIA
     Dosage: 500 MG, TID
     Route: 048
  6. ARGAMATE [Concomitant]
     Active Substance: POLYSTYRENE
     Dosage: 5.6 G, QD
     Route: 048
  7. EPOGIN [Concomitant]
     Indication: NEPHROGENIC ANAEMIA
     Dosage: 1500 IU, 3 TIMES/WK
     Route: 042
  8. UFT [Concomitant]
     Active Substance: TEGAFUR\URACIL
     Indication: BREAST CANCER
     Dosage: UNK
     Route: 048
     Dates: start: 200906, end: 200910
  9. NEXIUM [Concomitant]
     Active Substance: ESOMEPRAZOLE MAGNESIUM
     Dosage: 10 MG, QD
     Route: 048
  10. KAYEXALATE [Concomitant]
     Active Substance: SODIUM POLYSTYRENE SULFONATE
     Indication: HYPERKALAEMIA
     Dosage: 1 DF, QD
     Route: 048

REACTIONS (2)
  - Cardiomegaly [Recovered/Resolved with Sequelae]
  - Electrocardiogram T wave inversion [Recovered/Resolved with Sequelae]

NARRATIVE: CASE EVENT DATE: 20141024
